FAERS Safety Report 7590729-9 (Version None)
Quarter: 2011Q3

REPORT INFORMATION
  Report Type: 
  Country: None (occurrence: None)
  Receive Date: 20110705
  Receipt Date: 20110621
  Transmission Date: 20111222
  Serious: Yes (Hospitalization)
  Sender: FDA-Public Use
  Company Number: PHHY2011US33489

PATIENT
  Sex: Female

DRUGS (9)
  1. ZANTAC [Concomitant]
  2. AMLODIPINE [Concomitant]
  3. PROMETHAZINE [Concomitant]
  4. ALBUTEROL SULFATE AUTOHALER [Concomitant]
  5. OXYBUTYNIN [Concomitant]
  6. AMBIEN [Concomitant]
  7. LORTAB [Concomitant]
  8. XANAX [Concomitant]
  9. RECLAST [Suspect]
     Indication: OSTEOPOROSIS
     Dosage: 5 MG
     Route: 042
     Dates: start: 20110404

REACTIONS (6)
  - OVARIAN CYST [None]
  - ABDOMINAL PAIN UPPER [None]
  - ATRIOVENTRICULAR BLOCK [None]
  - ABDOMINAL DISTENSION [None]
  - ARTHRALGIA [None]
  - BONE PAIN [None]
